FAERS Safety Report 11432535 (Version 5)
Quarter: 2016Q1

REPORT INFORMATION
  Report Type: Spontaneous
  Country: US (occurrence: US)
  Receive Date: 20150828
  Receipt Date: 20160112
  Transmission Date: 20160525
  Serious: Yes (Death, Hospitalization, Other)
  Sender: FDA-Public Use
  Company Number: US-GLAXOSMITHKLINE INC.-US2015GSK080700

PATIENT
  Age: 54 Year
  Sex: Female

DRUGS (6)
  1. FLOLAN [Suspect]
     Active Substance: EPOPROSTENOL SODIUM
     Indication: PULMONARY ARTERIAL HYPERTENSION
     Dosage: UNK (VIAL STRENGTH 1.5 MG/ML), CO
     Route: 042
     Dates: start: 20050322
  2. FLOLAN [Suspect]
     Active Substance: EPOPROSTENOL SODIUM
     Dosage: 20 NG/KG/MIN CONTINUOUS
     Route: 042
  3. TRACLEER [Concomitant]
     Active Substance: BOSENTAN
  4. FLOLAN [Suspect]
     Active Substance: EPOPROSTENOL SODIUM
     Dosage: 20 NG/KG/MIN CO (CONCENTRATION 30,000 NG/ML, PUMP RATE 48 ML/DAY, VIAL STRENGTH 1.5 MG/ML)
     Route: 042
     Dates: start: 20050322
  5. FLOLAN [Suspect]
     Active Substance: EPOPROSTENOL SODIUM
     Dosage: 16.5 NG/KG/MIN (CONCENTRATION 30,000 NG/ML, PUMP RATE 40 ML/DAY, VIAL STRENGTH 1.5 MG/ML, CO
     Route: 042
  6. COUMADIN [Concomitant]
     Active Substance: WARFARIN SODIUM

REACTIONS (7)
  - Device related infection [Unknown]
  - Sepsis [Unknown]
  - Hospitalisation [Unknown]
  - Infection [Unknown]
  - Death [Fatal]
  - Palliative care [Unknown]
  - Central venous catheterisation [Unknown]

NARRATIVE: CASE EVENT DATE: 20150929
